FAERS Safety Report 7050332-6 (Version None)
Quarter: 2010Q4

REPORT INFORMATION
  Report Type: 
  Country: None (occurrence: None)
  Receive Date: 20101018
  Receipt Date: 20101012
  Transmission Date: 20110411
  Serious: Yes (Hospitalization)
  Sender: FDA-Public Use
  Company Number: US-BAYER-201036665NA

PATIENT
  Age: 39 Year
  Sex: Male

DRUGS (2)
  1. AVELOX [Suspect]
     Indication: PNEUMONIA
     Dosage: UNIT DOSE: 400 MG
     Route: 042
     Dates: start: 20101004, end: 20101005
  2. AVELOX [Suspect]
     Dosage: UNIT DOSE: 400 MG
     Route: 048
     Dates: start: 20101006, end: 20101007

REACTIONS (8)
  - ANXIETY [None]
  - CONFUSIONAL STATE [None]
  - INSOMNIA [None]
  - MANIA [None]
  - MENTAL IMPAIRMENT [None]
  - NERVOUSNESS [None]
  - PARANOIA [None]
  - TREMOR [None]
